FAERS Safety Report 8200899-7 (Version None)
Quarter: 2012Q1

REPORT INFORMATION
  Report Type: 
  Country: None (occurrence: None)
  Receive Date: 20120312
  Receipt Date: 20110802
  Transmission Date: 20120608
  Serious: No
  Sender: FDA-Public Use
  Company Number: US-ABBOTT-11P-163-0730994-00

PATIENT
  Sex: Female
  Weight: 75.818 kg

DRUGS (1)
  1. LUPRON DEPOT [Suspect]
     Indication: UTERINE LEIOMYOMA
     Dates: start: 20100920, end: 20101209

REACTIONS (2)
  - ARTHRALGIA [None]
  - GOITRE [None]
